FAERS Safety Report 4370763-2 (Version None)
Quarter: 2004Q2

REPORT INFORMATION
  Report Type: 
  Country: None (occurrence: None)
  Receive Date: 20040527
  Receipt Date: 20040512
  Transmission Date: 20050107
  Serious: Yes (Hospitalization)
  Sender: FDA-Public Use
  Company Number: A0510656A

PATIENT
  Age: 62 Year
  Sex: Male

DRUGS (1)
  1. NICORETTE [Suspect]
     Indication: FEAR
     Dosage: 4 MG /TRANSBUCCAL
     Dates: start: 20000101

REACTIONS (3)
  - CORONARY ARTERY OCCLUSION [None]
  - DEPENDENCE [None]
  - PHARMACEUTICAL PRODUCT COMPLAINT [None]
